FAERS Safety Report 18859620 (Version 2)
Quarter: 2021Q1

REPORT INFORMATION
  Report Type: Other
  Country: US (occurrence: US)
  Receive Date: 20210208
  Receipt Date: 20210220
  Transmission Date: 20210420
  Serious: Yes (Life-Threatening, Hospitalization, Other)
  Sender: FDA-Public Use
  Company Number: US-ROCHE-2745669

PATIENT
  Age: 66 Year
  Sex: Male

DRUGS (14)
  1. ACTEMRA [Suspect]
     Active Substance: TOCILIZUMAB
     Route: 065
     Dates: start: 20201027
  2. TYLENOL [Concomitant]
     Active Substance: ACETAMINOPHEN
     Indication: PAIN
     Dosage: TAKE 2 TABLETS (650 MG TOTAL) BY MOUTH EVERY 6 HOURS
     Route: 048
     Dates: start: 20201215
  3. LIPITOR [Concomitant]
     Active Substance: ATORVASTATIN CALCIUM
     Dosage: 1 TABLET BY MOUTH NIGHTLY AT BEDTIME
     Route: 048
     Dates: start: 20201215
  4. PRINIVIL [Concomitant]
     Active Substance: LISINOPRIL
     Dosage: TAKE 1 TABLET BY MOUTH DAILY
     Route: 048
     Dates: start: 20201215
  5. ACTEMRA [Suspect]
     Active Substance: TOCILIZUMAB
     Route: 065
     Dates: start: 20200929
  6. ACTEMRA [Suspect]
     Active Substance: TOCILIZUMAB
     Route: 065
     Dates: start: 20200826
  7. PLAVIX [Concomitant]
     Active Substance: CLOPIDOGREL BISULFATE
     Dosage: 1 TABLET BY MOUTH DAILY FOR 5 DOSES
     Route: 048
     Dates: start: 20201217, end: 20201222
  8. SENOKOT [Concomitant]
     Active Substance: SENNOSIDES
     Indication: CONSTIPATION
     Dosage: TAKE 2 TABLETS BY MOUTH NIGHTLY AT BEDTIMES AS NEEDED FOR CONSTIPATION
     Route: 048
     Dates: start: 20201215
  9. ASPIRIN. [Concomitant]
     Active Substance: ASPIRIN
     Dosage: DAILY
     Route: 048
     Dates: start: 20201215
  10. COLACE [Concomitant]
     Active Substance: DOCUSATE SODIUM
     Dosage: 1 CAPSULE BY MOUTH DAILY
     Route: 048
     Dates: start: 20201215
  11. MIRALAX [Concomitant]
     Active Substance: POLYETHYLENE GLYCOL 3350
     Indication: CONSTIPATION
     Dosage: 17 G BY MOUTH DAILY AS NEEDED
     Route: 048
     Dates: start: 20201215
  12. ACTEMRA [Suspect]
     Active Substance: TOCILIZUMAB
     Indication: RHEUMATOID ARTHRITIS
     Route: 042
     Dates: start: 20180917
  13. ACTEMRA [Suspect]
     Active Substance: TOCILIZUMAB
     Indication: RHEUMATOID ARTHRITIS
     Route: 065
     Dates: start: 20201124
  14. GLUCOPHAGE [Concomitant]
     Active Substance: METFORMIN HYDROCHLORIDE
     Dosage: TAKE 1 TABLET BY MOUTH 2 TIMES A DAY WITH MEALS
     Route: 048
     Dates: start: 20201215

REACTIONS (10)
  - Hypercholesterolaemia [Unknown]
  - Laryngeal cancer [Unknown]
  - Hypertension [Unknown]
  - Cerebrovascular accident [Recovered/Resolved with Sequelae]
  - Transaminases increased [Unknown]
  - Chest pain [Unknown]
  - Diabetes mellitus [Unknown]
  - Obesity [Unknown]
  - Periodontal disease [Unknown]
  - COVID-19 [Unknown]

NARRATIVE: CASE EVENT DATE: 20201130
